FAERS Safety Report 9685196 (Version 1)
Quarter: 2013Q4

REPORT INFORMATION
  Report Type: Spontaneous
  Country: US (occurrence: None)
  Receive Date: 20131112
  Receipt Date: 20131112
  Transmission Date: 20140711
  Serious: No
  Sender: FDA-Public Use
  Company Number: None

PATIENT
  Age: 60 Year
  Sex: Female
  Weight: 81.65 kg

DRUGS (2)
  1. POLYETHYLENE GLYCOL [Suspect]
     Indication: BOWEL PREPARATION
     Dates: start: 20131024
  2. POLYETHYLENE GLYCOL [Suspect]
     Indication: COLONOSCOPY
     Dates: start: 20131024

REACTIONS (1)
  - Urticaria [None]
